FAERS Safety Report 11682261 (Version 1)
Quarter: 2015Q4

REPORT INFORMATION
  Report Type: Spontaneous
  Country: US (occurrence: None)
  Receive Date: 20151028
  Receipt Date: 20151028
  Transmission Date: 20160304
  Serious: Yes (Hospitalization)
  Sender: FDA-Public Use
  Company Number: None

PATIENT
  Age: 70 Year
  Sex: Male
  Weight: 79 kg

DRUGS (4)
  1. TAXOL [Suspect]
     Active Substance: PACLITAXEL
     Dates: end: 20140812
  2. MARINOL [Concomitant]
     Active Substance: DRONABINOL
  3. CARBOPLATIN. [Suspect]
     Active Substance: CARBOPLATIN
     Dates: end: 20140812
  4. BEVACIZUMAB (RHUMAB VEGF) [Suspect]
     Active Substance: BEVACIZUMAB
     Dates: end: 20140812

REACTIONS (10)
  - Fall [None]
  - Headache [None]
  - Head injury [None]
  - Erythema [None]
  - Jaw fracture [None]
  - Confusional state [None]
  - Neck pain [None]
  - Blood culture positive [None]
  - Malaise [None]
  - Atelectasis [None]

NARRATIVE: CASE EVENT DATE: 20140820
